FAERS Safety Report 23096231 (Version 1)
Quarter: 2023Q4

REPORT INFORMATION
  Report Type: Spontaneous
  Country: US (occurrence: US)
  Receive Date: 20231023
  Receipt Date: 20231023
  Transmission Date: 20240109
  Serious: Yes (Hospitalization)
  Sender: FDA-Public Use
  Company Number: US-MYLANLABS-2023M1108865

PATIENT
  Age: 72 Year
  Sex: Female

DRUGS (1)
  1. METFORMIN [Suspect]
     Active Substance: METFORMIN HYDROCHLORIDE
     Indication: Type 2 diabetes mellitus
     Dosage: UNK
     Route: 065

REACTIONS (5)
  - Lactic acidosis [Recovering/Resolving]
  - Shock [Recovering/Resolving]
  - Intentional product misuse [Recovering/Resolving]
  - Vasoplegia syndrome [Recovering/Resolving]
  - Treatment noncompliance [Recovering/Resolving]
